FAERS Safety Report 15801356 (Version 3)
Quarter: 2019Q2

REPORT INFORMATION
  Report Type: Spontaneous
  Country: DE (occurrence: DE)
  Receive Date: 20190109
  Receipt Date: 20190404
  Transmission Date: 20190711
  Serious: Yes (Hospitalization, Other)
  Sender: FDA-Public Use
  Company Number: DE-ASTELLAS-2019US000865

PATIENT
  Age: 75 Year
  Sex: Male

DRUGS (4)
  1. TOREM                              /01036501/ [Concomitant]
     Active Substance: TORSEMIDE
     Indication: HYPERTENSION
     Dosage: 1 X 1 UNITS NOT PROVIDED, UNKNOWN FREQ.
     Route: 048
  2. CANDESARTAN. [Concomitant]
     Active Substance: CANDESARTAN
     Indication: HYPERTENSION
     Dosage: 1 X 1 UNITS NOT PROVIDED, UNKNOWN FREQ.
     Route: 048
  3. XTANDI [Suspect]
     Active Substance: ENZALUTAMIDE
     Indication: PROSTATE CANCER
     Route: 048
     Dates: start: 201502, end: 20180702
  4. METOPROLOL. [Concomitant]
     Active Substance: METOPROLOL
     Indication: HYPERTENSION
     Dosage: 1 X 1 UNITS NOT PROVIDED, UNKNOWN FREQ.
     Route: 048

REACTIONS (2)
  - Ileus [Recovering/Resolving]
  - Gastric ulcer perforation [Unknown]

NARRATIVE: CASE EVENT DATE: 20180702
